FAERS Safety Report 20371333 (Version 2)
Quarter: 2022Q1

REPORT INFORMATION
  Report Type: Spontaneous
  Country: US (occurrence: US)
  Receive Date: 20220124
  Receipt Date: 20220218
  Transmission Date: 20220423
  Serious: Yes (Hospitalization, Other)
  Sender: FDA-Public Use
  Company Number: US-JNJFOC-20211130633

PATIENT
  Age: 75 Year
  Sex: Female
  Weight: 62.198 kg

DRUGS (32)
  1. STELARA [Suspect]
     Active Substance: USTEKINUMAB
     Indication: Psoriasis
     Route: 058
     Dates: start: 20210820, end: 20211127
  2. DIPROLENE [Suspect]
     Active Substance: BETAMETHASONE DIPROPIONATE
     Indication: Product used for unknown indication
     Route: 061
  3. PREDNISONE [Suspect]
     Active Substance: PREDNISONE
     Indication: Product used for unknown indication
     Route: 048
  4. ERYTHROMYCIN [Suspect]
     Active Substance: ERYTHROMYCIN
     Indication: Product used for unknown indication
     Dosage: ADMINISTER TO THE RIGHT EYE EVERY MORNING + EVERY EVENING. PLACE A 1/2 INCH RIBBON OF OINTMENT INTO
     Route: 065
  5. ASPIRIN [Concomitant]
     Active Substance: ASPIRIN
     Dosage: LOW DOSE ASPIRIN
     Route: 048
  6. METOPROLOL [Concomitant]
     Active Substance: METOPROLOL
     Indication: Product used for unknown indication
     Dosage: 25 MG 24 HR TABLET
  7. OMEGA 3 [Concomitant]
     Active Substance: CAPSAICIN
     Indication: Product used for unknown indication
     Dosage: TAKE CAPSULE BY MOUTH (120 MG-180 MG)
     Route: 048
  8. Natural D3 [Concomitant]
     Indication: Product used for unknown indication
  9. CALCIUM\CHOLECALCIFEROL [Concomitant]
     Active Substance: CALCIUM\CHOLECALCIFEROL
     Dosage: 1000UNITS
     Route: 048
  10. LEVOTHYROXINE [Concomitant]
     Active Substance: LEVOTHYROXINE
     Dates: start: 20210928, end: 20211026
  11. PANTOPRAZOLE [Concomitant]
     Active Substance: PANTOPRAZOLE
     Route: 048
  12. RESTASIS [Concomitant]
     Active Substance: CYCLOSPORINE
  13. XIIDRA [Concomitant]
     Active Substance: LIFITEGRAST
  14. AMITRIPTYLINE [Concomitant]
     Active Substance: AMITRIPTYLINE
     Dosage: TAKE 2 TABLETS BY MOUTH AT BEDTIME
     Route: 048
  15. PLAVIX [Concomitant]
     Active Substance: CLOPIDOGREL BISULFATE
  16. CLOPIDOGREL [Concomitant]
     Active Substance: CLOPIDOGREL BISULFATE
     Route: 048
  17. EZETIMIBE [Concomitant]
     Active Substance: EZETIMIBE
  18. FLUTICASONE PROPIONATE\SALMETEROL XINAFOATE [Concomitant]
     Active Substance: FLUTICASONE PROPIONATE\SALMETEROL XINAFOATE
     Dosage: USE 1 INHALATION EVERY 12 HOURS DISKUS) 250-50 MCG/DOSE
  19. HYDROCORTISONE [Concomitant]
     Active Substance: HYDROCORTISONE
     Dosage: APPLY TOPICALLY TWICE DAILY EYEBROWS AND CHEEKS USE FOR 7 DAYS IN A ROW THEN STOP
  20. LEVOTHYROXINE [Concomitant]
     Active Substance: LEVOTHYROXINE
     Dosage: TAKE 50 MCG BY MOUTH EVERY MORNING
     Route: 048
  21. RESTASIS [Concomitant]
     Active Substance: CYCLOSPORINE
     Dosage: 0.05 % OPHTHALMIC EMULSION
  22. .ALPHA.-TOCOPHEROL\ASCORBIC ACID [Concomitant]
     Active Substance: .ALPHA.-TOCOPHEROL\ASCORBIC ACID
     Dosage: 320 MG TAKE 1 CAPSULE BY MOUTH.
  23. ZINC [Concomitant]
     Active Substance: ZINC
     Dosage: 226 UNIT TAKE 1 CAPSULE BY MOUTH.
     Route: 048
  24. COPPER [Concomitant]
     Active Substance: COPPER
     Dosage: 200 UNIT CAPTAKE 1 CAPSULE BY MOUTH.
  25. ETANERCEPT [Concomitant]
     Active Substance: ETANERCEPT
     Dosage: 50 MG/M
  26. FLUOCINONIDE [Concomitant]
     Active Substance: FLUOCINONIDE
     Dosage: APPLY TO SCALP TWICE A DAY FOR UP TO 2 WEEKS OUT OF THE MONTH
  27. OXYCODONE AND ACETAMINOPHEN [Concomitant]
     Active Substance: ACETAMINOPHEN\OXYCODONE HYDROCHLORIDE
     Dosage: 5-325 MG PER TABLET
  28. PHENAZOPYRIDINE [Concomitant]
     Active Substance: PHENAZOPYRIDINE
  29. POLYETHYLENE GLYCOL COMPOUND [Concomitant]
  30. DOCUSATE\SENNOSIDES [Concomitant]
     Active Substance: DOCUSATE\SENNOSIDES
     Dosage: TAKE 2 TABLETS BY MOUTH AT BEDTIME. 8.6-50 MG ?TABLET
  31. TRAMADOL [Concomitant]
     Active Substance: TRAMADOL
     Dosage: TAKE 1 TABLET (50 MG TOTAL) BY MOUTH EVERY 6 HOURS
  32. ZOLPIDEM [Concomitant]
     Active Substance: ZOLPIDEM TARTRATE
     Dosage: TAKE 5 MG BY MOUTH AT BEDTIME AS NEEDED FOR INSOMNIA.

REACTIONS (3)
  - Pancreatitis acute [Recovering/Resolving]
  - Cough [Unknown]
  - Headache [Unknown]

NARRATIVE: CASE EVENT DATE: 20210928
